FAERS Safety Report 8304546-5 (Version None)
Quarter: 2012Q2

REPORT INFORMATION
  Report Type: 
  Country: None (occurrence: None)
  Receive Date: 20120423
  Receipt Date: 20120413
  Transmission Date: 20120825
  Serious: Yes (Other)
  Sender: FDA-Public Use
  Company Number: BR-GLAXOSMITHKLINE-A0974257A

PATIENT
  Sex: Male
  Weight: 76 kg

DRUGS (4)
  1. FLUTICASONE PROPIONATE/SALMETEROL [Suspect]
     Indication: ASTHMA
     Dosage: 1PUFF TWICE PER DAY
     Route: 055
     Dates: start: 20120201
  2. CEFADROXIL [Concomitant]
     Dates: start: 20120411
  3. AMBROXOL [Concomitant]
     Dosage: 10ML THREE TIMES PER DAY
     Dates: start: 20120409
  4. LOSARTAN WITH HYDROCHLOROTHIAZIDE [Concomitant]
     Dosage: 1TAB PER DAY

REACTIONS (4)
  - ASTHMATIC CRISIS [None]
  - PRODUCT QUALITY ISSUE [None]
  - ASTHENIA [None]
  - OVERDOSE [None]
